FAERS Safety Report 5093162-7 (Version None)
Quarter: 2006Q3

REPORT INFORMATION
  Report Type: 
  Country: None (occurrence: None)
  Receive Date: 20060828
  Receipt Date: 20060816
  Transmission Date: 20061208
  Serious: Yes (Life-Threatening)
  Sender: FDA-Public Use
  Company Number: GXKR2006GB04906

PATIENT
  Age: 49 Year
  Sex: Male

DRUGS (5)
  1. INDOMETHACIN [Suspect]
     Indication: GOUT
     Dosage: 50 MG, TID, ORAL
     Route: 048
     Dates: start: 20060615, end: 20060615
  2. AZATHIOPRINE [Concomitant]
  3. COLCHICINE [Concomitant]
  4. MESALAZINE [Concomitant]
  5. PREDNISOLONE [Concomitant]

REACTIONS (1)
  - GRAND MAL CONVULSION [None]
